FAERS Safety Report 13676142 (Version 3)
Quarter: 2017Q3

REPORT INFORMATION
  Report Type: Report from Study
  Country: None (occurrence: NL)
  Receive Date: 20170622
  Receipt Date: 20170711
  Transmission Date: 20171127
  Serious: Yes (Hospitalization, Other)
  Sender: FDA-Public Use
  Company Number: NL-ABBVIE-16P-114-1755706-00

PATIENT
  Sex: Male
  Weight: 75 kg

DRUGS (9)
  1. SYMMETREL [Concomitant]
     Active Substance: AMANTADINE HYDROCHLORIDE
     Indication: PRODUCT USED FOR UNKNOWN INDICATION
  2. MADOPAR [Concomitant]
     Active Substance: BENSERAZIDE HYDROCHLORIDE\LEVODOPA
     Indication: PRODUCT USED FOR UNKNOWN INDICATION
  3. DUODOPA [Suspect]
     Active Substance: CARBIDOPA\LEVODOPA
     Dosage: MORNING DOSE IS REDUCED WITH 1.0 ML, MD 12 ML
     Route: 050
     Dates: start: 2017, end: 2017
  4. DUODOPA [Suspect]
     Active Substance: CARBIDOPA\LEVODOPA
     Dosage: MD 8.5, CD 3.3, ED 2.0.
     Route: 050
     Dates: start: 20170611, end: 2017
  5. DUODOPA [Suspect]
     Active Substance: CARBIDOPA\LEVODOPA
     Dosage: MORNING DOSE: 8.0 CONTINUOUS DOSE: 3.3 EXTRA DOSE: 2.0
     Route: 050
     Dates: start: 2017
  6. SYMMETREL [Concomitant]
     Active Substance: AMANTADINE HYDROCHLORIDE
     Dosage: DOSES INCREASED
  7. DUODOPA [Suspect]
     Active Substance: CARBIDOPA\LEVODOPA
     Dosage: CD DECREASED WITH 0.2ML TO 3.6 ML
     Route: 050
  8. DUODOPA [Suspect]
     Active Substance: CARBIDOPA\LEVODOPA
     Dosage: CDD: 12.5  EXTRA DOSE IS INCREASED WITH 1ML AND THE CONTINUOUS DOSE INCREASED WITH 0.3ML.
     Route: 050
     Dates: start: 2017, end: 2017
  9. DUODOPA [Suspect]
     Active Substance: CARBIDOPA\LEVODOPA
     Indication: PARKINSON^S DISEASE
     Dosage: MD: 13.0 CD: 3.8, ED: 1.0
     Route: 050
     Dates: start: 20160926

REACTIONS (14)
  - Eye disorder [Recovered/Resolved]
  - Eye paraesthesia [Recovered/Resolved]
  - Muscle rigidity [Not Recovered/Not Resolved]
  - Stress [Not Recovered/Not Resolved]
  - Bradykinesia [Not Recovered/Not Resolved]
  - Drug effect incomplete [Unknown]
  - Nasopharyngitis [Not Recovered/Not Resolved]
  - Eye disorder [Not Recovered/Not Resolved]
  - On and off phenomenon [Recovering/Resolving]
  - Dyskinesia [Recovering/Resolving]
  - Oculogyric crisis [Recovered/Resolved]
  - Fatigue [Not Recovered/Not Resolved]
  - Chorea [Not Recovered/Not Resolved]
  - Mobility decreased [Not Recovered/Not Resolved]

NARRATIVE: CASE EVENT DATE: 2016
